FAERS Safety Report 7354757-0 (Version None)
Quarter: 2011Q1

REPORT INFORMATION
  Report Type: 
  Country: None (occurrence: None)
  Receive Date: 20110308
  Receipt Date: 20110223
  Transmission Date: 20110831
  Serious: Yes (Other)
  Sender: FDA-Public Use
  Company Number: JP-2011-10146

PATIENT
  Age: 74 Year
  Sex: Female
  Weight: 37 kg

DRUGS (9)
  1. LEVOTHYROXINE SODIUM [Concomitant]
  2. WARFARIN (WARFARIN POTASSIUM) [Concomitant]
  3. SAMSCA [Suspect]
     Indication: OEDEMA PERIPHERAL
     Dosage: 15 MG MILLIGRAM(S), QD, ORAL
     Route: 048
     Dates: start: 20110118, end: 20110123
  4. ANZIEF (ALLOPURINOL) [Concomitant]
  5. GASTER D (FAMOTODINE) [Concomitant]
  6. CETAPRIL (ALACEPRIL) [Concomitant]
  7. ASPIRIN [Concomitant]
  8. ALDACTONE [Suspect]
     Indication: OEDEMA PERIPHERAL
     Dosage: 25 MG MILLIGRAM(S), QD, ORAL
     Route: 048
     Dates: start: 20101214, end: 20110124
  9. LASIX [Suspect]
     Indication: OEDEMA PERIPHERAL
     Dosage: 40 MG MILLIGRAM(S), QD, ORAL
     Route: 048
     Dates: start: 20101214, end: 20110123

REACTIONS (11)
  - DRUG INEFFECTIVE [None]
  - ACTIVITIES OF DAILY LIVING IMPAIRED [None]
  - HYPERNATRAEMIA [None]
  - ALTERED STATE OF CONSCIOUSNESS [None]
  - HEPATIC FUNCTION ABNORMAL [None]
  - HEPATIC CONGESTION [None]
  - BEDRIDDEN [None]
  - PLEURAL EFFUSION [None]
  - DEHYDRATION [None]
  - MELAENA [None]
  - DEMENTIA [None]
